FAERS Safety Report 21331957 (Version 1)
Quarter: 2022Q3

REPORT INFORMATION
  Report Type: Other
  Country: GB (occurrence: GB)
  Receive Date: 20220914
  Receipt Date: 20220914
  Transmission Date: 20221027
  Serious: Yes (Other)
  Sender: FDA-Public Use
  Company Number: GB-MACLEODS PHARMA UK LTD-MAC2022037135

PATIENT

DRUGS (4)
  1. ARIPIPRAZOLE [Suspect]
     Active Substance: ARIPIPRAZOLE
     Indication: Psychotic disorder
     Dosage: 15 MILLIGRAM, QD, 15 MG OD PO, TABLET
     Route: 048
     Dates: start: 20220520, end: 20220628
  2. ARIPIPRAZOLE [Suspect]
     Active Substance: ARIPIPRAZOLE
     Dosage: 10 MILLIGRAM, QD , 20 JUNE ARIPIPRAZOLE INCREASED TO 10 MG DAILY
     Route: 065
     Dates: start: 20220620
  3. ARIPIPRAZOLE [Suspect]
     Active Substance: ARIPIPRAZOLE
     Dosage: 15 MILLIGRAM, QD, 24 JUNE ARIPIPRAZOLE INCREASED TO 15 MG PO DAILY
     Route: 048
     Dates: start: 20220624
  4. OLANZAPINE [Concomitant]
     Active Substance: OLANZAPINE
     Indication: Product used for unknown indication
     Dosage: UNK, LAST DOSE OLANZAPINE FRIDAY 10 JUNE
     Route: 065

REACTIONS (3)
  - Catatonia [Recovered/Resolved]
  - Suicidal ideation [Unknown]
  - Homicidal ideation [Unknown]

NARRATIVE: CASE EVENT DATE: 20220628
